FAERS Safety Report 15230900 (Version 1)
Quarter: 2018Q3

REPORT INFORMATION
  Report Type: Spontaneous
  Country: US (occurrence: US)
  Receive Date: 20180802
  Receipt Date: 20180802
  Transmission Date: 20181010
  Serious: No
  Sender: FDA-Public Use
  Company Number: US-JNJFOC-20180710917

PATIENT
  Sex: Female

DRUGS (9)
  1. TYLENOL [Suspect]
     Active Substance: ACETAMINOPHEN
     Indication: PREMEDICATION
     Route: 065
     Dates: start: 2014
  2. TYLENOL [Suspect]
     Active Substance: ACETAMINOPHEN
     Indication: PREMEDICATION
     Route: 065
     Dates: start: 201711
  3. IBUPROFEN. [Suspect]
     Active Substance: IBUPROFEN
     Indication: PREMEDICATION
     Route: 065
     Dates: end: 2014
  4. REMICADE [Concomitant]
     Active Substance: INFLIXIMAB
     Indication: PSORIASIS
     Route: 042
     Dates: start: 201403
  5. REMICADE [Concomitant]
     Active Substance: INFLIXIMAB
     Indication: PSORIASIS
     Route: 042
     Dates: start: 2017, end: 201711
  6. REMICADE [Concomitant]
     Active Substance: INFLIXIMAB
     Indication: PSORIASIS
     Route: 042
     Dates: start: 20180628
  7. DIPHENHYDRAMINE. [Concomitant]
     Active Substance: DIPHENHYDRAMINE
     Indication: PREMEDICATION
     Route: 042
  8. IBUPROFEN. [Suspect]
     Active Substance: IBUPROFEN
     Indication: PREMEDICATION
     Route: 065
     Dates: end: 201711
  9. REMICADE [Concomitant]
     Active Substance: INFLIXIMAB
     Indication: PSORIASIS
     Route: 042
     Dates: start: 201711, end: 201806

REACTIONS (2)
  - Product use in unapproved indication [Unknown]
  - Off label use [Unknown]
